FAERS Safety Report 9348245 (Version 2)
Quarter: 2013Q2

REPORT INFORMATION
  Report Type: Report from Study
  Country: CA (occurrence: CA)
  Receive Date: 20130614
  Receipt Date: 20130628
  Transmission Date: 20140414
  Serious: Yes (Other)
  Sender: FDA-Public Use
  Company Number: CA-ROCHE-1225377

PATIENT
  Age: 56 Year
  Sex: Male
  Weight: 109.3 kg

DRUGS (10)
  1. RITUXAN [Suspect]
     Indication: RHEUMATOID ARTHRITIS
     Dosage: LAST DOSE ON 28/JUN/2010, DAY 1 AND DAY 15
     Route: 042
     Dates: start: 20091111
  2. METHOTREXATE [Concomitant]
  3. PLAQUENIL [Concomitant]
  4. PIROXICAM [Concomitant]
  5. FOLIC ACID [Concomitant]
  6. SUPEUDOL [Concomitant]
  7. DIOVAN [Concomitant]
  8. DIPHENHYDRAMINE HCL [Concomitant]
     Indication: PREMEDICATION
     Route: 048
     Dates: start: 20091111
  9. ACETAMINOPHEN [Concomitant]
     Indication: PREMEDICATION
     Route: 048
     Dates: start: 20091111
  10. METHYLPREDNISOLONE [Concomitant]
     Indication: PREMEDICATION
     Route: 042
     Dates: start: 20091111

REACTIONS (5)
  - Rheumatoid arthritis [Not Recovered/Not Resolved]
  - Foot operation [Unknown]
  - Infusion related reaction [Recovered/Resolved]
  - Arthropathy [Recovered/Resolved]
  - Pain in extremity [Recovered/Resolved]
